FAERS Safety Report 24324188 (Version 2)
Quarter: 2024Q4

REPORT INFORMATION
  Report Type: Report from Study
  Country: US (occurrence: US)
  Receive Date: 20240916
  Receipt Date: 20241017
  Transmission Date: 20250115
  Serious: Yes (Other)
  Sender: JOHNSON AND JOHNSON
  Company Number: US-JNJFOC-20240917486

PATIENT
  Sex: Female

DRUGS (1)
  1. TALVEY [Suspect]
     Active Substance: TALQUETAMAB-TGVS
     Indication: Plasma cell myeloma
     Route: 058
     Dates: start: 20230918, end: 20231121

REACTIONS (5)
  - Cytokine release syndrome [Recovered/Resolved]
  - Drug ineffective [Unknown]
  - Ageusia [Recovering/Resolving]
  - Weight decreased [Recovering/Resolving]
  - Onychomadesis [Recovering/Resolving]
